FAERS Safety Report 16838678 (Version 1)
Quarter: 2019Q3

REPORT INFORMATION
  Report Type: Spontaneous
  Country: JP (occurrence: JP)
  Receive Date: 20190923
  Receipt Date: 20190923
  Transmission Date: 20191005
  Serious: Yes (Other)
  Sender: FDA-Public Use
  Company Number: GXJP2019JP001645

PATIENT
  Age: 75 Year
  Sex: Female

DRUGS (2)
  1. OXALIPLATIN INTRAVENOUS INFUSION [Suspect]
     Active Substance: OXALIPLATIN
     Indication: COLON CANCER STAGE III
     Dosage: 130 MG/M2, UNK (OVER 2H) ON DAY 1
     Route: 041
  2. CAPECITABINE. [Concomitant]
     Active Substance: CAPECITABINE
     Indication: COLON CANCER STAGE III
     Dosage: 1000 MG/M2, BID
     Route: 048

REACTIONS (2)
  - Neurotoxicity [Unknown]
  - Decreased appetite [Unknown]
